FAERS Safety Report 11045772 (Version 1)
Quarter: 2015Q2

REPORT INFORMATION
  Report Type: Report from Study
  Country: US (occurrence: US)
  Receive Date: 20150417
  Receipt Date: 20150417
  Transmission Date: 20150821
  Serious: Yes (Hospitalization)
  Sender: FDA-Public Use
  Company Number: US-INTERMUNE, INC.-201504IM013505

PATIENT
  Age: 77 Year
  Sex: Male

DRUGS (5)
  1. HUMIRA [Concomitant]
     Active Substance: ADALIMUMAB
  2. ESBRIET [Suspect]
     Active Substance: PIRFENIDONE
     Route: 048
     Dates: start: 2015
  3. ESBRIET [Suspect]
     Active Substance: PIRFENIDONE
     Dosage: 1602 MG
     Route: 048
  4. FLU VACCCINE [Concomitant]
  5. OINTMENT [Concomitant]
     Active Substance: UNSPECIFIED INGREDIENT
     Indication: PSORIASIS
     Route: 061

REACTIONS (6)
  - Liver function test abnormal [Unknown]
  - Dyspepsia [Unknown]
  - Asthenia [Unknown]
  - Pancreatic disorder [Unknown]
  - Dyspnoea [Unknown]
  - Dehydration [Unknown]

NARRATIVE: CASE EVENT DATE: 2015
